FAERS Safety Report 17868084 (Version 2)
Quarter: 2020Q3

REPORT INFORMATION
  Report Type: Report from Study
  Country: US (occurrence: US)
  Receive Date: 20200605
  Receipt Date: 20200714
  Transmission Date: 20201103
  Serious: Yes (Death, Hospitalization)
  Sender: FDA-Public Use
  Company Number: US-ACTELION-A-NJ2020-200774

PATIENT
  Age: 35 Year
  Sex: Female
  Weight: 92.52 kg

DRUGS (3)
  1. TYVASO [Concomitant]
     Active Substance: TREPROSTINIL
  2. OPSUMIT [Suspect]
     Active Substance: MACITENTAN
     Indication: PULMONARY ARTERIAL HYPERTENSION
     Dosage: 10 MG, QD
     Route: 048
     Dates: end: 20200607
  3. ADEMPAS [Concomitant]
     Active Substance: RIOCIGUAT

REACTIONS (7)
  - Dyspnoea exertional [Unknown]
  - Chest discomfort [Unknown]
  - Death [Fatal]
  - Hospitalisation [Unknown]
  - Palpitations [Unknown]
  - Panic attack [Unknown]
  - Oedema [Unknown]

NARRATIVE: CASE EVENT DATE: 20200607
